FAERS Safety Report 20677024 (Version 1)
Quarter: 2022Q2

REPORT INFORMATION
  Report Type: Spontaneous
  Country: US (occurrence: None)
  Receive Date: 20220406
  Receipt Date: 20220406
  Transmission Date: 20220720
  Serious: No
  Sender: FDA-Public Use
  Company Number: US-EyePoint Pharmaceuticals, Inc.-US-EYP-22-00003

PATIENT

DRUGS (1)
  1. DEXYCU [Suspect]
     Active Substance: DEXAMETHASONE
     Indication: Post procedural inflammation
     Route: 031
     Dates: start: 202112, end: 202112

REACTIONS (2)
  - Intraocular pressure increased [Unknown]
  - Therapeutic response changed [Unknown]
